FAERS Safety Report 14341199 (Version 1)
Quarter: 2018Q1

REPORT INFORMATION
  Report Type: Spontaneous
  Country: FR (occurrence: FR)
  Receive Date: 20180102
  Receipt Date: 20180102
  Transmission Date: 20180509
  Serious: Yes (Other)
  Sender: FDA-Public Use
  Company Number: FR-MERCK KGAA-2038083

PATIENT
  Age: 32 Year
  Sex: Female
  Weight: 62 kg

DRUGS (5)
  1. NOVOTHYROX [Suspect]
     Active Substance: LEVOTHYROXINE SODIUM
     Indication: THYROIDECTOMY
     Route: 048
     Dates: end: 20171002
  2. LEVEMIR [Concomitant]
     Active Substance: INSULIN DETEMIR
     Route: 058
  3. MINIDRIL(EUGYNON) [Concomitant]
     Route: 048
     Dates: end: 201706
  4. EUTHYROX [Concomitant]
     Active Substance: LEVOTHYROXINE SODIUM
     Route: 048
  5. NOVOTHYROX [Suspect]
     Active Substance: LEVOTHYROXINE SODIUM
     Route: 048
     Dates: end: 20170902

REACTIONS (5)
  - Asthenia [Not Recovered/Not Resolved]
  - Skin disorder [Recovering/Resolving]
  - Migraine [Not Recovered/Not Resolved]
  - Diffuse alopecia [Recovering/Resolving]
  - Blood thyroid stimulating hormone normal [Recovered/Resolved]

NARRATIVE: CASE EVENT DATE: 201705
